FAERS Safety Report 24422450 (Version 1)
Quarter: 2024Q4

REPORT INFORMATION
  Report Type: Spontaneous
  Country: US (occurrence: None)
  Receive Date: 20241009
  Receipt Date: 20241009
  Transmission Date: 20250115
  Serious: Yes (Hospitalization)
  Sender: Public
  Company Number: None

PATIENT
  Age: 85 Year
  Sex: Male
  Weight: 92 kg

DRUGS (2)
  1. ASPIRIN [Suspect]
     Active Substance: ASPIRIN
     Indication: Thrombosis prophylaxis
     Dosage: FREQUENCY : TWICE A DAY;?
     Route: 048
     Dates: end: 20240611
  2. MELOXICAM [Suspect]
     Active Substance: MELOXICAM
     Dosage: FREQUENCY : DAILY;?
     Route: 048
     Dates: end: 20240611

REACTIONS (2)
  - Duodenitis [None]
  - Dyspepsia [None]

NARRATIVE: CASE EVENT DATE: 20240611
